FAERS Safety Report 4376077-9 (Version None)
Quarter: 2004Q2

REPORT INFORMATION
  Report Type: 
  Country: None (occurrence: None)
  Receive Date: 20040607
  Receipt Date: 20040524
  Transmission Date: 20050107
  Serious: Yes (Other)
  Sender: FDA-Public Use
  Company Number: 2004032613

PATIENT
  Age: 54 Year
  Sex: Female

DRUGS (1)
  1. ATORVASTATIN (ATORVASTATIN) [Suspect]
     Indication: ILL-DEFINED DISORDER

REACTIONS (6)
  - IATROGENIC INJURY [None]
  - MUSCLE NECROSIS [None]
  - OEDEMA PERIPHERAL [None]
  - POLYMYOSITIS [None]
  - RAYNAUD'S PHENOMENON [None]
  - SCLERODERMA [None]
